FAERS Safety Report 8282524-2 (Version None)
Quarter: 2012Q2

REPORT INFORMATION
  Report Type: 
  Country: None (occurrence: None)
  Receive Date: 20120413
  Receipt Date: 20120402
  Transmission Date: 20120825
  Serious: Yes (Congenital Anomaly, Other)
  Sender: FDA-Public Use
  Company Number: JP-VERTEX PHARMACEUTICALS INC.-AE-2012-005187

PATIENT
  Age: 63 Year
  Sex: Female

DRUGS (7)
  1. REBETOL [Concomitant]
     Indication: HEPATITIS C
     Route: 048
     Dates: start: 20120202, end: 20120216
  2. PEG-INTRON [Concomitant]
     Indication: HEPATITIS C
     Route: 051
     Dates: start: 20120202, end: 20120314
  3. REBETOL [Concomitant]
     Route: 048
     Dates: start: 20120217, end: 20120222
  4. PEG-INTRON [Concomitant]
     Route: 051
     Dates: start: 20120315
  5. REBETOL [Concomitant]
     Route: 048
     Dates: start: 20120223
  6. TELAVIC (TELAPREVIR) [Suspect]
     Indication: HEPATITIS C
     Route: 048
     Dates: start: 20120202, end: 20120314
  7. TELAVIC (TELAPREVIR) [Suspect]
     Route: 048
     Dates: start: 20120315

REACTIONS (7)
  - WHITE BLOOD CELL COUNT DECREASED [None]
  - BLOOD CREATININE INCREASED [None]
  - BLOOD URIC ACID INCREASED [None]
  - WEIGHT DECREASED [None]
  - HAEMOGLOBIN DECREASED [None]
  - MALAISE [None]
  - DECREASED APPETITE [None]
